FAERS Safety Report 6666695-7 (Version None)
Quarter: 2010Q1

REPORT INFORMATION
  Report Type: 
  Country: None (occurrence: None)
  Receive Date: 20100331
  Receipt Date: 20100320
  Transmission Date: 20100710
  Serious: Yes (Hospitalization)
  Sender: FDA-Public Use
  Company Number: 2010AP000565

PATIENT
  Age: 14 Year
  Sex: Female

DRUGS (4)
  1. CARBAMAZEPINE [Suspect]
     Indication: EPILEPSY
  2. ZONISAMIDE [Suspect]
     Indication: EPILEPSY
  3. PHENOBARBITAL TAB [Suspect]
     Indication: EPILEPSY
  4. VALPROATE SODIUM [Suspect]
     Indication: EPILEPSY

REACTIONS (11)
  - ACNE [None]
  - ALOPECIA [None]
  - CONSTIPATION [None]
  - CYSTITIS [None]
  - HIRSUTISM [None]
  - INTESTINAL OBSTRUCTION [None]
  - OVARIAN GRANULOSA-THECA CELL TUMOUR [None]
  - PANCREATITIS [None]
  - PERITONITIS SCLEROSING [None]
  - RESPIRATORY DISTRESS [None]
  - VOMITING [None]
